FAERS Safety Report 26057967 (Version 1)
Quarter: 2025Q4

REPORT INFORMATION
  Report Type: Spontaneous
  Country: UA (occurrence: UA)
  Receive Date: 20251118
  Receipt Date: 20251118
  Transmission Date: 20260118
  Serious: Yes (Other)
  Sender: ALEXION PHARMACEUTICALS
  Company Number: UA-AstraZeneca-CH-00876487A

PATIENT
  Sex: Male

DRUGS (1)
  1. TICAGRELOR [Suspect]
     Active Substance: TICAGRELOR
     Dosage: 90 MILLIGRAM, BID
     Route: 065

REACTIONS (1)
  - Vascular stent thrombosis [Unknown]
